FAERS Safety Report 9844118 (Version 2)
Quarter: 2014Q1

REPORT INFORMATION
  Report Type: Spontaneous
  Country: DE (occurrence: DE)
  Receive Date: 20140127
  Receipt Date: 20140228
  Transmission Date: 20141002
  Serious: Yes (Hospitalization, Other)
  Sender: FDA-Public Use
  Company Number: DE-AMGEN-DEUSP2014004779

PATIENT
  Age: 70 Year
  Sex: Female
  Weight: 57 kg

DRUGS (15)
  1. MIMPARA [Suspect]
     Indication: HYPERPARATHYROIDISM SECONDARY
     Dosage: 30 MG, EVERY SECOND DAY
     Route: 065
     Dates: end: 20140121
  2. PROGRAF [Concomitant]
     Dosage: 1 MG, UNK
  3. CELLCEPT                           /01275102/ [Concomitant]
     Dosage: 250 MG, BID
  4. DECORTIN H [Concomitant]
     Dosage: 5 MG, UNK
     Dates: end: 201210
  5. LASIX                              /00032601/ [Concomitant]
     Dosage: 40 MG, UNK
  6. ZYLORIC [Concomitant]
     Dosage: 100 MG, UNK
  7. CONCOR [Concomitant]
     Dosage: 2.5 MG, UNK
  8. DELIX                              /00885601/ [Concomitant]
     Dosage: 5 MG, BID
  9. EUTHYROX [Concomitant]
     Dosage: 150 MUG, UNK
  10. PLAVIX [Concomitant]
     Dosage: 75 MG, QD
  11. VITAMIN D3-HEVERT [Concomitant]
     Dosage: EVERY OTHER DAY
  12. MIRCERA [Concomitant]
     Dosage: 100 MUG, Q6WK
  13. PRESOMEN 28 COMPOSITUM [Concomitant]
     Dosage: UNK UNK, QD
  14. COMBIZYM                           /00014701/ [Concomitant]
     Dosage: UNK UNK, QD
  15. NOVALGIN                           /00169801/ [Concomitant]
     Dosage: UNK UNK, BID

REACTIONS (23)
  - Diabetes mellitus [Unknown]
  - Polyneuropathy [Unknown]
  - Immunosuppression [Not Recovered/Not Resolved]
  - Femoral neck fracture [Unknown]
  - Intervertebral disc operation [Unknown]
  - Cytomegalovirus test positive [Unknown]
  - BK virus infection [Unknown]
  - Hepatic cyst [Unknown]
  - Peripheral arterial occlusive disease [Unknown]
  - Spondylolisthesis [Unknown]
  - Pseudomembranous colitis [Unknown]
  - Breast cancer [Recovering/Resolving]
  - Hypertension [Unknown]
  - Nephrogenic anaemia [Unknown]
  - Peripheral sensory neuropathy [Unknown]
  - Gastrointestinal infection [Recovered/Resolved]
  - Sinobronchitis [Recovered/Resolved]
  - Movement disorder [Unknown]
  - Lymphoedema [Unknown]
  - Breast swelling [Unknown]
  - Sciatica [Unknown]
  - Hypercalcaemia [Unknown]
  - Gastritis [Unknown]
